FAERS Safety Report 11995257 (Version 2)
Quarter: 2016Q1

REPORT INFORMATION
  Report Type: Spontaneous
  Country: US (occurrence: US)
  Receive Date: 20160203
  Receipt Date: 20160205
  Transmission Date: 20160526
  Serious: Yes (Hospitalization, Other)
  Sender: FDA-Public Use
  Company Number: US-NOVOPROD-478687

PATIENT
  Sex: Female

DRUGS (1)
  1. LEVEMIR [Suspect]
     Active Substance: INSULIN DETEMIR
     Indication: PRODUCT USED FOR UNKNOWN INDICATION
     Route: 058

REACTIONS (5)
  - Blood glucose increased [Unknown]
  - Back pain [Unknown]
  - Blood glucose decreased [Unknown]
  - Pain in extremity [Unknown]
  - Localised infection [Unknown]

NARRATIVE: CASE EVENT DATE: 2014
